FAERS Safety Report 5268775-X (Version None)
Quarter: 2007Q1

REPORT INFORMATION
  Report Type: 
  Country: None (occurrence: None)
  Receive Date: 20070319
  Receipt Date: 20070305
  Transmission Date: 20070707
  Serious: Yes (Hospitalization)
  Sender: FDA-Public Use
  Company Number: ES-ELI_LILLY_AND_COMPANY-ES200511000772

PATIENT
  Age: 69 Year
  Sex: Male
  Weight: 65 kg

DRUGS (8)
  1. GEMCITABINE HCL [Suspect]
     Dosage: 2145 MG, OTHER
     Route: 042
     Dates: start: 20050920, end: 20051020
  2. CISPLATIN [Suspect]
     Dosage: 128.7 MG, OTHER
     Route: 042
     Dates: start: 20050920, end: 20051014
  3. OMEPRAZOLE [Concomitant]
     Indication: GASTRIC ULCER
     Dosage: UNK, UNK
     Dates: start: 19850101
  4. PREDNISONE [Concomitant]
     Indication: PROPHYLAXIS OF NAUSEA AND VOMITING
     Dosage: UNK, UNK
  5. ACETAMINOPHEN [Concomitant]
     Indication: ANALGESIC EFFECT
     Dosage: UNK, UNK
  6. CODEINE [Concomitant]
     Dosage: UNK, UNK
  7. FOLIC ACID [Concomitant]
     Indication: PREMEDICATION
     Dosage: 400 UG, DAILY (1/D)
     Dates: start: 20050920
  8. FOLIC ACID [Concomitant]
     Dosage: 400 UG, DAILY (1/D)
     Dates: start: 20050920

REACTIONS (1)
  - LIVER DISORDER [None]
